FAERS Safety Report 24428646 (Version 2)
Quarter: 2024Q4

REPORT INFORMATION
  Report Type: Spontaneous
  Country: US (occurrence: US)
  Receive Date: 20241011
  Receipt Date: 20241126
  Transmission Date: 20250114
  Serious: No
  Sender: GLAXOSMITHKLINE
  Company Number: US-GSKCCFUS-Case-02118415_AE-116858

PATIENT
  Sex: Male

DRUGS (1)
  1. TRELEGY ELLIPTA [Suspect]
     Active Substance: FLUTICASONE FUROATE\UMECLIDINIUM BROMIDE\VILANTEROL TRIFENATATE
     Indication: Product used for unknown indication
     Dosage: 1 PUFF(S), QD-100/62.5/25 MCG,USED FOR  5 OR MORE YEARS
     Route: 055

REACTIONS (4)
  - Oral discomfort [Recovered/Resolved]
  - Throat irritation [Recovered/Resolved]
  - Extra dose administered [Unknown]
  - Product complaint [Unknown]
